FAERS Safety Report 9649278 (Version 1)
Quarter: 2013Q4

REPORT INFORMATION
  Report Type: Spontaneous
  Country: GB (occurrence: GB)
  Receive Date: 20131028
  Receipt Date: 20131028
  Transmission Date: 20140711
  Serious: Yes (Hospitalization)
  Sender: FDA-Public Use
  Company Number: GB-GLAXOSMITHKLINE-B0932752A

PATIENT
  Age: 88 Year
  Sex: Male

DRUGS (7)
  1. VENTOLIN [Suspect]
     Indication: INHALATION THERAPY
     Dosage: 4PUFF SINGLE DOSE
     Route: 055
     Dates: start: 20131017, end: 20131017
  2. QUININE [Concomitant]
  3. LANSOPRAZOLE [Concomitant]
  4. PERINDOPRIL [Concomitant]
  5. TAMSULOSIN [Concomitant]
  6. SERETIDE [Concomitant]
  7. UNKNOWN DRUG [Concomitant]

REACTIONS (5)
  - Loss of consciousness [Not Recovered/Not Resolved]
  - Fall [Not Recovered/Not Resolved]
  - Abdominal distension [Not Recovered/Not Resolved]
  - Tremor [Not Recovered/Not Resolved]
  - Cold sweat [Not Recovered/Not Resolved]
